FAERS Safety Report 6639427-6 (Version None)
Quarter: 2010Q1

REPORT INFORMATION
  Report Type: 
  Country: None (occurrence: None)
  Receive Date: 20100315
  Receipt Date: 20100303
  Transmission Date: 20100710
  Serious: Yes (Hospitalization)
  Sender: FDA-Public Use
  Company Number: ADR-209-058

PATIENT
  Age: 53 Year
  Sex: Female
  Weight: 78.9259 kg

DRUGS (2)
  1. TERBINAFINE HYDROCHLORIDE [Suspect]
     Indication: FUNGAL INFECTION
     Dosage: 250 MG 1 DAY, ORAL
     Route: 048
     Dates: start: 20091224, end: 20100117
  2. TRILEPTAL [Concomitant]

REACTIONS (6)
  - DECREASED APPETITE [None]
  - DIZZINESS [None]
  - HYPERSENSITIVITY [None]
  - PAIN [None]
  - PRURITUS [None]
  - URTICARIA [None]
